FAERS Safety Report 7916989-X (Version None)
Quarter: 2011Q4

REPORT INFORMATION
  Report Type: 
  Country: None (occurrence: None)
  Receive Date: 20111116
  Receipt Date: 20111116
  Transmission Date: 20120403
  Serious: Yes (Other)
  Sender: FDA-Public Use
  Company Number: None

PATIENT
  Age: 33 Year
  Sex: Female
  Weight: 61.234 kg

DRUGS (1)
  1. MIRENA [Suspect]
     Dates: start: 20091101, end: 20111110

REACTIONS (9)
  - LIBIDO DECREASED [None]
  - TREMOR [None]
  - MUSCLE TWITCHING [None]
  - INSOMNIA [None]
  - ALOPECIA [None]
  - ACNE [None]
  - ANXIETY [None]
  - MOOD SWINGS [None]
  - BLINDNESS [None]
